FAERS Safety Report 23344838 (Version 1)
Quarter: 2023Q4

REPORT INFORMATION
  Report Type: Spontaneous
  Country: US (occurrence: US)
  Receive Date: 20231228
  Receipt Date: 20231228
  Transmission Date: 20240109
  Serious: Yes (Other)
  Sender: FDA-Public Use
  Company Number: US-BRISTOL-MYERS SQUIBB COMPANY-2023-181511

PATIENT
  Age: 61 Year
  Sex: Female

DRUGS (3)
  1. REVLIMID [Suspect]
     Active Substance: LENALIDOMIDE
     Indication: Plasma cell myeloma
     Dosage: DOSE : 15 MG;     FREQ : ONCE DAILY X 21 DAYS, THEN 7 DAYS OFF
     Route: 048
     Dates: start: 202310
  2. ELIQUIS [Concomitant]
     Active Substance: APIXABAN
     Indication: Product used for unknown indication
     Route: 048
     Dates: start: 202307
  3. MAGNESIUM STEARATE [Concomitant]
     Active Substance: MAGNESIUM STEARATE
     Indication: Product used for unknown indication

REACTIONS (12)
  - Arthralgia [Unknown]
  - Back pain [Unknown]
  - Hyperhidrosis [Unknown]
  - Depression [Unknown]
  - Headache [Unknown]
  - Pigmentation disorder [Unknown]
  - Contusion [Unknown]
  - Feeling abnormal [Unknown]
  - Psychomotor hyperactivity [Unknown]
  - Plasma cell myeloma [Unknown]
  - Product dose omission in error [Unknown]
  - Burning sensation [Unknown]
